FAERS Safety Report 8250849-2 (Version None)
Quarter: 2012Q2

REPORT INFORMATION
  Report Type: 
  Country: None (occurrence: None)
  Receive Date: 20120402
  Receipt Date: 20120330
  Transmission Date: 20120825
  Serious: Yes (Hospitalization)
  Sender: FDA-Public Use
  Company Number: PHHO2011PL05834

PATIENT
  Sex: Male
  Weight: 84 kg

DRUGS (1)
  1. EVEROLIMUS [Suspect]
     Indication: RENAL CELL CARCINOMA
     Dosage: UNK
     Route: 048
     Dates: start: 20101117, end: 20110301

REACTIONS (2)
  - NEOPLASM MALIGNANT [None]
  - CHOLESTASIS [None]
